FAERS Safety Report 8353486-4 (Version None)
Quarter: 2012Q2

REPORT INFORMATION
  Report Type: 
  Country: None (occurrence: None)
  Receive Date: 20120511
  Receipt Date: 20110418
  Transmission Date: 20120825
  Serious: No
  Sender: FDA-Public Use
  Company Number: US-GLAXOSMITHKLINE-A0923375A

PATIENT
  Age: 62 Year
  Sex: Female

DRUGS (3)
  1. FEMARA [Concomitant]
  2. TYKERB [Suspect]
     Indication: BREAST CANCER
     Dosage: 1250MG PER DAY
     Route: 048
     Dates: start: 20110414, end: 20110419
  3. NEXIUM [Concomitant]

REACTIONS (4)
  - PRURITUS [None]
  - RASH PAPULAR [None]
  - ABDOMINAL DISCOMFORT [None]
  - RASH [None]
